FAERS Safety Report 9937277 (Version 2)
Quarter: 2014Q1

REPORT INFORMATION
  Report Type: Spontaneous
  Country: US (occurrence: US)
  Receive Date: 20140302
  Receipt Date: 20140302
  Transmission Date: 20141002
  Serious: Yes (Other)
  Sender: FDA-Public Use
  Company Number: US-GE HEALTHCARE MEDICAL DIAGNOSTICS-OSCN-PR-0908S-0395

PATIENT
  Age: 54 Year
  Sex: Female

DRUGS (5)
  1. OMNISCAN [Suspect]
     Indication: CONVULSION
     Route: 042
     Dates: start: 20050722, end: 20050722
  2. GADOLINIUM (UNSPECIFIED) [Suspect]
     Indication: PRODUCT USED FOR UNKNOWN INDICATION
     Route: 042
     Dates: start: 20050819, end: 20050819
  3. GADOLINIUM (UNSPECIFIED) [Suspect]
     Route: 042
     Dates: start: 20051114, end: 20051114
  4. MAGNEVIST [Suspect]
     Indication: PRODUCT USED FOR UNKNOWN INDICATION
     Route: 042
     Dates: start: 20041109, end: 20041109
  5. MAGNEVIST [Suspect]
     Route: 042
     Dates: start: 20050902, end: 20050902

REACTIONS (1)
  - Nephrogenic systemic fibrosis [Not Recovered/Not Resolved]
